FAERS Safety Report 5391082-1 (Version None)
Quarter: 2007Q3

REPORT INFORMATION
  Report Type: 
  Country: None (occurrence: None)
  Receive Date: 20070717
  Receipt Date: 20070705
  Transmission Date: 20080115
  Serious: Yes (Hospitalization)
  Sender: FDA-Public Use
  Company Number: 2007S1006074

PATIENT
  Age: 71 Year
  Sex: Male

DRUGS (1)
  1. FENTANYL TRANSDERMAL SYSTEM [Suspect]
     Indication: PAIN
     Dosage: 100 UG/HR;X1;TRANSDERMAL
     Route: 062
     Dates: start: 20070704, end: 20070705

REACTIONS (3)
  - CONTRAINDICATION TO MEDICAL TREATMENT [None]
  - GENERAL PHYSICAL CONDITION ABNORMAL [None]
  - INCORRECT DOSE ADMINISTERED [None]
